FAERS Safety Report 7767735 (Version 5)
Quarter: 2012Q4

REPORT INFORMATION
  Report Type: 
  Country: US (occurrence: US)
  Receive Date: 20110120
  Receipt Date: 20121120
  Transmission Date: 20130627
  Serious: Yes (Hospitalization, Other)
  Sender: FDA-Public Use
  Company Number: US-US-EMD SERONO, INC.-7036100

PATIENT
  Sex: Female

DRUGS (3)
  1. REBIF [Suspect]
     Indication: MULTIPLE SCLEROSIS
     Route: 058
     Dates: start: 20101123, end: 201012
  2. REBIF [Suspect]
     Route: 058
     Dates: end: 201110
  3. IBUPROFEN [Suspect]

REACTIONS (10)
  - Gastric ulcer haemorrhage [Recovered/Resolved]
  - Staphylococcal infection [Recovering/Resolving]
  - Heart valve operation [Recovered/Resolved]
  - Arthropod bite [Recovered/Resolved]
  - Sepsis [Recovering/Resolving]
  - Wound [Unknown]
  - Haemoglobin decreased [Unknown]
  - Eye swelling [Unknown]
  - Loss of control of legs [Recovering/Resolving]
  - Fall [Unknown]
